FAERS Safety Report 4333445-9 (Version None)
Quarter: 2004Q1

REPORT INFORMATION
  Report Type: 
  Country: None (occurrence: None)
  Receive Date: 20040330
  Receipt Date: 20040315
  Transmission Date: 20041129
  Serious: Yes (Hospitalization)
  Sender: FDA-Public Use
  Company Number: 205307

PATIENT
  Age: 87 Year
  Sex: Female

DRUGS (1)
  1. RITUXAN [Suspect]
     Indication: ANAEMIA HAEMOLYTIC AUTOIMMUNE
     Dosage: INTRAVENOUS
     Route: 042
     Dates: start: 20040301

REACTIONS (2)
  - ARTHRITIS BACTERIAL [None]
  - GENERAL PHYSICAL HEALTH DETERIORATION [None]
